FAERS Safety Report 14491647 (Version 3)
Quarter: 2018Q1

REPORT INFORMATION
  Report Type: Spontaneous
  Country: US (occurrence: US)
  Receive Date: 20180206
  Receipt Date: 20180220
  Transmission Date: 20180509
  Serious: Yes (Death, Hospitalization)
  Sender: FDA-Public Use
  Company Number: US-OTSUKA-2018_003102

PATIENT
  Age: 24 Year
  Sex: Male

DRUGS (1)
  1. ABILIFY MAINTENA [Suspect]
     Active Substance: ARIPIPRAZOLE
     Indication: SCHIZOPHRENIA
     Dosage: 400 MG, ONCE EVERY 4 WEEKS
     Route: 030
     Dates: start: 20170502, end: 20171128

REACTIONS (2)
  - Thinking abnormal [Unknown]
  - Completed suicide [Fatal]

NARRATIVE: CASE EVENT DATE: 2017
